FAERS Safety Report 22219382 (Version 2)
Quarter: 2023Q2

REPORT INFORMATION
  Report Type: Report from Study
  Country: AU (occurrence: AU)
  Receive Date: 20230417
  Receipt Date: 20230426
  Transmission Date: 20230722
  Serious: Yes (Other)
  Sender: FDA-Public Use
  Company Number: AU-ABBVIE-4729583

PATIENT
  Sex: Female

DRUGS (2)
  1. CARBIDOPA\LEVODOPA [Suspect]
     Active Substance: CARBIDOPA\LEVODOPA
     Indication: Parkinson^s disease
     Dosage: MORNING DOSE 9MLS; CONTINUOUS DOSE 5.6 MLS/HR; EXTRA DOSE 4.2 MLS.  DURATION TEXT: 16HOURS
     Route: 050
     Dates: start: 20200529
  2. CARBIDOPA\LEVODOPA [Suspect]
     Active Substance: CARBIDOPA\LEVODOPA

REACTIONS (4)
  - Macular degeneration [Unknown]
  - Abdominal pain [Unknown]
  - Device issue [Unknown]
  - Stoma complication [Unknown]
